FAERS Safety Report 21601677 (Version 2)
Quarter: 2024Q1

REPORT INFORMATION
  Report Type: Report from Study
  Country: US (occurrence: US)
  Receive Date: 20221116
  Receipt Date: 20240101
  Transmission Date: 20240409
  Serious: No
  Sender: FDA-Public Use
  Company Number: US-ABBVIE-4169270

PATIENT
  Age: 51 Year
  Sex: Female
  Weight: 89.357 kg

DRUGS (2)
  1. RINVOQ [Suspect]
     Active Substance: UPADACITINIB
     Indication: Product used for unknown indication
     Route: 048
     Dates: start: 20220427
  2. ENBREL [Concomitant]
     Active Substance: ETANERCEPT
     Indication: Product used for unknown indication
     Route: 065
     Dates: end: 202204

REACTIONS (3)
  - Upper respiratory tract infection [Unknown]
  - COVID-19 [Unknown]
  - Cellulitis [Unknown]

NARRATIVE: CASE EVENT DATE: 20220801
